FAERS Safety Report 4342398-9 (Version None)
Quarter: 2004Q2

REPORT INFORMATION
  Report Type: 
  Country: None (occurrence: None)
  Receive Date: 20040413
  Receipt Date: 20030929
  Transmission Date: 20050107
  Serious: Yes (Death)
  Sender: FDA-Public Use
  Company Number: M2004.0234

PATIENT
  Age: 77 Year
  Sex: Male

DRUGS (9)
  1. DICLOFENAC SODIUM [Suspect]
     Indication: PAIN
     Dosage: 50MG TDS;  (LESS THAN 10 DAYS)
     Route: 062
     Dates: start: 20030501
  2. ASPIRIN (ACETYLSALICYLIC ACID, EC) [Concomitant]
  3. PRAVASTATIN [Concomitant]
  4. IMDUR (ISOSORBIDE) [Concomitant]
  5. RAMIPRIL [Concomitant]
  6. ALLOPURINOL [Concomitant]
  7. ATENOLOL [Concomitant]
  8. FUROSEMIDE [Concomitant]
  9. CASODEX [Concomitant]

REACTIONS (3)
  - BLOOD URIC ACID INCREASED [None]
  - MELAENA [None]
  - UPPER GASTROINTESTINAL HAEMORRHAGE [None]
